FAERS Safety Report 6613418-3 (Version None)
Quarter: 2010Q1

REPORT INFORMATION
  Report Type: 
  Country: None (occurrence: None)
  Receive Date: 20100224
  Receipt Date: 20090902
  Transmission Date: 20100710
  Serious: Yes (Hospitalization)
  Sender: FDA-Public Use
  Company Number: WAES 0909USA00343

PATIENT
  Age: 45 Year
  Sex: Female

DRUGS (9)
  1. ZOCOR [Suspect]
     Indication: BLOOD CHOLESTEROL INCREASED
     Dosage: 40 MG/DAILY/PO : 80 MG/DAILY/PO
     Route: 048
     Dates: start: 20040101, end: 20070101
  2. ZOCOR [Suspect]
     Indication: BLOOD CHOLESTEROL INCREASED
     Dosage: 40 MG/DAILY/PO : 80 MG/DAILY/PO
     Route: 048
     Dates: start: 20090401, end: 20090715
  3. ANTIVIRAL (UNSPECIFIED) UNK [Suspect]
     Dates: start: 20040101, end: 20090718
  4. COREG [Concomitant]
  5. HUMULIN R [Concomitant]
  6. SYNTHROID [Concomitant]
  7. TRIZIVIR [Concomitant]
  8. HYDROCODONE BITARTRATE [Concomitant]
  9. LISINOPRIL [Concomitant]

REACTIONS (1)
  - RHABDOMYOLYSIS [None]
